FAERS Safety Report 5285373-2 (Version None)
Quarter: 2007Q2

REPORT INFORMATION
  Report Type: 
  Country: None (occurrence: None)
  Receive Date: 20070403
  Receipt Date: 20070322
  Transmission Date: 20071010
  Serious: Yes (Other)
  Sender: FDA-Public Use
  Company Number: US-PFIZER INC-2007024717

PATIENT
  Sex: Male
  Weight: 81.6 kg

DRUGS (7)
  1. CHANTIX [Suspect]
     Indication: SMOKING CESSATION THERAPY
  2. NEURONTIN [Suspect]
     Indication: NERVE INJURY
     Dates: start: 20060101, end: 20070321
  3. NEURONTIN [Suspect]
     Indication: HYPOAESTHESIA
  4. ALCOHOL [Suspect]
  5. ZONEGRAN [Concomitant]
  6. ZYRTEC [Concomitant]
  7. PERCOCET [Concomitant]

REACTIONS (2)
  - CONVULSION [None]
  - PAIN [None]
